FAERS Safety Report 7412168-3 (Version None)
Quarter: 2011Q2

REPORT INFORMATION
  Report Type: 
  Country: None (occurrence: None)
  Receive Date: 20110408
  Receipt Date: 20110408
  Transmission Date: 20111010
  Serious: Yes (Other)
  Sender: FDA-Public Use
  Company Number: None

PATIENT
  Age: 73 Year
  Sex: Female
  Weight: 54.4316 kg

DRUGS (5)
  1. LEVOXYL [Concomitant]
  2. LIPITOR [Concomitant]
  3. PROMETRIUM [Concomitant]
  4. FEMRING [Concomitant]
  5. ACTONEL [Suspect]
     Indication: OSTEOPENIA
     Dosage: ONE TABLET MONTHLY PO
     Route: 048
     Dates: start: 20110102, end: 20110404

REACTIONS (6)
  - HEADACHE [None]
  - MYALGIA [None]
  - VOMITING [None]
  - ASTHENIA [None]
  - DIARRHOEA [None]
  - INFLUENZA [None]
